FAERS Safety Report 7512769-8 (Version None)
Quarter: 2011Q2

REPORT INFORMATION
  Report Type: 
  Country: None (occurrence: None)
  Receive Date: 20110531
  Receipt Date: 20110523
  Transmission Date: 20111010
  Serious: Yes (Hospitalization)
  Sender: FDA-Public Use
  Company Number: A0929562A

PATIENT
  Sex: Female
  Weight: 50 kg

DRUGS (3)
  1. PAROXETINE HCL [Suspect]
     Route: 065
     Dates: start: 20110510, end: 20110521
  2. LAMICTAL [Suspect]
     Indication: SLEEP DISORDER
     Dosage: 100MG THREE TIMES PER DAY
     Route: 065
     Dates: start: 20110510, end: 20110521
  3. SEROQUEL [Suspect]
     Route: 065
     Dates: start: 20110510

REACTIONS (7)
  - TACHYCARDIA [None]
  - MYOCARDIAL INFARCTION [None]
  - AKINESIA [None]
  - ANGINA PECTORIS [None]
  - TREMOR [None]
  - VISION BLURRED [None]
  - FATIGUE [None]
